FAERS Safety Report 8243768-9 (Version None)
Quarter: 2012Q1

REPORT INFORMATION
  Report Type: 
  Country: None (occurrence: None)
  Receive Date: 20120329
  Receipt Date: 20111006
  Transmission Date: 20120608
  Serious: No
  Sender: FDA-Public Use
  Company Number: US-MYLANLABS-2011S1018902

PATIENT
  Age: 63 Year
  Sex: Female

DRUGS (5)
  1. EMSAM [Suspect]
     Indication: DEPRESSION
     Dosage: CHANGED Q24H
     Route: 062
  2. COUMADIN [Concomitant]
     Dates: start: 20100101
  3. ATACAND [Concomitant]
     Indication: BLOOD PRESSURE INCREASED
  4. LITHIUM CARBONATE [Concomitant]
     Indication: DEPRESSION
  5. PROTONIX [Concomitant]
     Indication: GASTROOESOPHAGEAL REFLUX DISEASE

REACTIONS (2)
  - DEPRESSION [None]
  - DRUG INEFFECTIVE [None]
